FAERS Safety Report 16987229 (Version 3)
Quarter: 2020Q1

REPORT INFORMATION
  Report Type: Spontaneous
  Country: ES (occurrence: ES)
  Receive Date: 20191102
  Receipt Date: 20200116
  Transmission Date: 20200409
  Serious: Yes (Other)
  Sender: FDA-Public Use
  Company Number: ES-TEVA-2019-ES-1130484

PATIENT
  Age: 56 Year
  Sex: Female

DRUGS (6)
  1. CLARITROMICINA 500 MG 14 COMPRIMIDOS [Suspect]
     Active Substance: CLARITHROMYCIN
     Indication: BRONCHITIS
     Dosage: 500 MG PER 12 HOURS; 14 TABLETS
     Route: 048
     Dates: start: 20191001, end: 20191002
  2. TERBASMIN TURBUHALER 500 MICROGRAMOS/INHALACION POLVO PARA INHALACION, [Concomitant]
     Dosage: 1 INHALER OF 100 DOSES
     Route: 065
  3. OMEPRAZOL (2141A) [Concomitant]
     Active Substance: OMEPRAZOLE
     Route: 065
  4. METOTREXATO 2,5 MG COMPRIMIDO [Concomitant]
     Route: 065
  5. RAMIPRIL/HIDROCLOROTIAZIDA 2,5 MG/12,5 MG COMPRIMIDO [Concomitant]
     Dosage: 2.5 MG / 12.5 MG
     Route: 065
  6. ACFOL 5 MG COMPRIMIDOS [Concomitant]

REACTIONS (3)
  - Conjunctival haemorrhage [Unknown]
  - Muscle spasms [Unknown]
  - Headache [Unknown]

NARRATIVE: CASE EVENT DATE: 20191002
